FAERS Safety Report 9897247 (Version 1)
Quarter: 2014Q1

REPORT INFORMATION
  Report Type: Spontaneous
  Country: IT (occurrence: IT)
  Receive Date: 20140214
  Receipt Date: 20140214
  Transmission Date: 20141002
  Serious: Yes (Hospitalization)
  Sender: FDA-Public Use
  Company Number: IT-ASTRAZENECA-2014SE09691

PATIENT
  Age: 23657 Day
  Sex: Male

DRUGS (8)
  1. ROSUVASTATIN [Suspect]
     Indication: HYPERCHOLESTEROLAEMIA
     Route: 048
     Dates: start: 20130101
  2. DIAMICRON [Concomitant]
     Indication: TYPE 2 DIABETES MELLITUS
  3. LANOXIN [Concomitant]
  4. COLCHICINE [Concomitant]
  5. METFORMIN [Concomitant]
     Indication: TYPE 2 DIABETES MELLITUS
     Route: 048
  6. AMLODIPINE [Concomitant]
  7. DABIGATRAN [Concomitant]
  8. LOSARTAN [Concomitant]

REACTIONS (8)
  - Paraesthesia [Recovering/Resolving]
  - Blood creatinine increased [Unknown]
  - Tenderness [Unknown]
  - Asthenia [Recovering/Resolving]
  - Myopathy [Recovering/Resolving]
  - Pain in extremity [Recovering/Resolving]
  - Alanine aminotransferase increased [Unknown]
  - Guillain-Barre syndrome [Unknown]
